FAERS Safety Report 7231416-6 (Version None)
Quarter: 2011Q1

REPORT INFORMATION
  Report Type: 
  Country: None (occurrence: None)
  Receive Date: 20110118
  Receipt Date: 20110112
  Transmission Date: 20110831
  Serious: Yes (Death, Hospitalization)
  Sender: FDA-Public Use
  Company Number: IT-ASTRAZENECA-2010SE55518

PATIENT
  Age: 28976 Day
  Sex: Male
  Weight: 63 kg

DRUGS (11)
  1. LANREOTIDE [Suspect]
     Indication: PROSTATE CANCER
     Route: 058
     Dates: start: 20100510, end: 20100523
  2. BLOPRESSID [Concomitant]
     Indication: HYPERTENSION
     Dosage: 16/12.5 MG DAILY
     Route: 048
     Dates: start: 20080115
  3. ZD4054 [Suspect]
     Indication: PROSTATE CANCER
     Route: 048
     Dates: start: 20090427
  4. PREDNISONE [Concomitant]
     Indication: PROSTATE CANCER
     Route: 048
     Dates: start: 20090525
  5. LASIX [Concomitant]
     Indication: HYPERTENSION
     Route: 048
     Dates: start: 20080115
  6. TAPAZOLE [Concomitant]
     Indication: HYPERTHYROIDISM
     Route: 048
     Dates: start: 20090526
  7. METHYLPREDNISOLONE ACETATE [Concomitant]
     Indication: PREMEDICATION
     Route: 042
     Dates: start: 20090727
  8. DOCETAXEL [Suspect]
     Indication: PROSTATE CANCER
     Route: 042
     Dates: start: 20090727
  9. LANREOTIDE [Suspect]
     Route: 058
     Dates: start: 20100917
  10. TRIPTORELIN [Suspect]
     Indication: PROSTATE CANCER
     Dosage: 18 CYCLES
     Route: 030
     Dates: start: 20050224
  11. LANSOX [Concomitant]
     Indication: GASTRITIS PROPHYLAXIS
     Route: 048
     Dates: start: 20080115

REACTIONS (1)
  - RENAL FAILURE ACUTE [None]
